FAERS Safety Report 8296648-7 (Version None)
Quarter: 2012Q2

REPORT INFORMATION
  Report Type: 
  Country: None (occurrence: None)
  Receive Date: 20120418
  Receipt Date: 20120418
  Transmission Date: 20120825
  Serious: Yes (Hospitalization)
  Sender: FDA-Public Use
  Company Number: None

PATIENT
  Age: 64 Year
  Sex: Male
  Weight: 82 kg

DRUGS (4)
  1. ASPIRIN [Concomitant]
     Indication: CORONARY ARTERIAL STENT INSERTION
     Dosage: 325 MG
     Route: 048
     Dates: start: 20100201, end: 20120415
  2. IBUPROFEN [Concomitant]
     Indication: CORONARY ARTERY DISEASE
     Route: 048
  3. PRASUGREL [Suspect]
     Indication: CORONARY ARTERY DISEASE
     Dosage: 10 MG
     Route: 048
     Dates: start: 20100201, end: 20120415
  4. PRASUGREL [Suspect]
     Indication: CORONARY ARTERIAL STENT INSERTION
     Dosage: 10 MG
     Route: 048
     Dates: start: 20100201, end: 20120415

REACTIONS (3)
  - SUBDURAL HAEMATOMA [None]
  - HEADACHE [None]
  - VOMITING [None]
